FAERS Safety Report 14113411 (Version 1)
Quarter: 2017Q4

REPORT INFORMATION
  Report Type: Spontaneous
  Country: US (occurrence: US)
  Receive Date: 20171021
  Receipt Date: 20171021
  Transmission Date: 20180321
  Serious: Yes (Life-Threatening)
  Sender: FDA-Public Use
  Company Number: None

PATIENT
  Age: 40 Year
  Sex: Female
  Weight: 82.35 kg

DRUGS (1)
  1. BUTRANS [Suspect]
     Active Substance: BUPRENORPHINE
     Indication: PAIN MANAGEMENT
     Route: 062

REACTIONS (4)
  - Cardiac disorder [None]
  - Serotonin syndrome [None]
  - Hypertension [None]
  - Condition aggravated [None]

NARRATIVE: CASE EVENT DATE: 20081009
